FAERS Safety Report 12197918 (Version 1)
Quarter: 2016Q1

REPORT INFORMATION
  Report Type: Spontaneous
  Country: US (occurrence: None)
  Receive Date: 20160321
  Receipt Date: 20160321
  Transmission Date: 20160526
  Serious: Yes (Disabling, Other)
  Sender: FDA-Public Use
  Company Number: None

PATIENT
  Age: 68 Year
  Sex: Female
  Weight: 65.77 kg

DRUGS (16)
  1. ADVAIR HFA [Concomitant]
     Active Substance: FLUTICASONE PROPIONATE\SALMETEROL XINAFOATE
  2. PROAIR HFA [Concomitant]
     Active Substance: ALBUTEROL SULFATE
  3. VITAMIN C [Concomitant]
     Active Substance: ASCORBIC ACID
  4. ZOLOFT [Concomitant]
     Active Substance: SERTRALINE HYDROCHLORIDE
  5. CELECOXIB. [Suspect]
     Active Substance: CELECOXIB
     Indication: ARTHRITIS
     Dosage: 1-2 PILLS AT BEDTIME TAKEN BY MOUTH
     Route: 048
     Dates: start: 20151222, end: 20160101
  6. COD LIVER OIL [Concomitant]
     Active Substance: COD LIVER OIL
  7. ALLEGRA (SEASONAL) [Concomitant]
  8. CELECOXIB. [Suspect]
     Active Substance: CELECOXIB
     Indication: INFLAMMATION
     Dosage: 1-2 PILLS AT BEDTIME TAKEN BY MOUTH
     Route: 048
     Dates: start: 20151222, end: 20160101
  9. PREDNISONE. [Concomitant]
     Active Substance: PREDNISONE
  10. HYDROCODONE/ACETAMINOPHEN [Concomitant]
     Active Substance: ACETAMINOPHEN\HYDROCODONE
  11. VITAMIN D3 [Concomitant]
     Active Substance: CHOLECALCIFEROL
  12. LYRICA [Concomitant]
     Active Substance: PREGABALIN
  13. VITAMIN B12 [Concomitant]
     Active Substance: CYANOCOBALAMIN
  14. VITAMIN E [Concomitant]
     Active Substance: .ALPHA.-TOCOPHEROL
  15. CELECOXIB. [Suspect]
     Active Substance: CELECOXIB
     Indication: FIBROMYALGIA
     Dosage: 1-2 PILLS AT BEDTIME TAKEN BY MOUTH
     Route: 048
     Dates: start: 20151222, end: 20160101
  16. LIDODERM [Concomitant]
     Active Substance: LIDOCAINE

REACTIONS (9)
  - Diarrhoea [None]
  - Burning sensation [None]
  - Rhinorrhoea [None]
  - Paraesthesia [None]
  - Skin discolouration [None]
  - Muscle spasms [None]
  - Rash [None]
  - Hypoaesthesia [None]
  - Dysphagia [None]

NARRATIVE: CASE EVENT DATE: 20160101
